FAERS Safety Report 7968173-1 (Version None)
Quarter: 2011Q4

REPORT INFORMATION
  Report Type: 
  Country: None (occurrence: None)
  Receive Date: 20111209
  Receipt Date: 20111201
  Transmission Date: 20120403
  Serious: Yes (Disabling, Other)
  Sender: FDA-Public Use
  Company Number: US-BRISTOL-MYERS SQUIBB COMPANY-16214306

PATIENT
  Age: 55 Year
  Sex: Female

DRUGS (5)
  1. LUVOX [Concomitant]
     Dates: start: 20110302
  2. VITAMIN B-12 [Concomitant]
     Route: 048
  3. LOSARTAN POTASSIUM [Concomitant]
  4. PROZAC [Concomitant]
     Indication: DEPRESSION
     Dates: start: 20110101
  5. ABILIFY [Suspect]
     Indication: DEPRESSION
     Dosage: DOSE INCREASED TO 5MG THEN 10MG
     Route: 048
     Dates: start: 20101230, end: 20111001

REACTIONS (2)
  - GASTRIC BYPASS [None]
  - TARDIVE DYSKINESIA [None]
